FAERS Safety Report 5981502 (Version 5)
Quarter: 2013Q2

REPORT INFORMATION
  Report Type: Not Available
  Country: FR (occurrence: FR)
  Receive Date: 20060210
  Receipt Date: 20130612
  Transmission Date: 20140414
  Serious: Yes (Hospitalization, Congenital Anomaly, Other)
  Sender: FDA-Public Use
  Company Number: FR-RB-2594-2006

PATIENT
  Age: 3 Day
  Sex: Male
  Weight: 3.5 kg

DRUGS (5)
  1. SUBUTEX [Suspect]
     Route: 064
     Dates: start: 20040324, end: 2004
  2. SUBUTEX [Suspect]
     Indication: PRODUCT USED FOR UNKNOWN INDICATION
     Route: 064
     Dates: start: 2004, end: 20041214
  3. RIVOTRIL [Suspect]
     Indication: PRODUCT USED FOR UNKNOWN INDICATION
     Route: 064
     Dates: start: 20040324, end: 20041214
  4. DEPAKINE TABLETS [Suspect]
     Indication: PRODUCT USED FOR UNKNOWN INDICATION
     Route: 064
     Dates: start: 20040324, end: 2004
  5. DEPAKINE TABLETS [Suspect]
     Route: 064
     Dates: end: 20041214

REACTIONS (4)
  - Foetal exposure during pregnancy [Recovered/Resolved]
  - Dysmorphism [Recovered/Resolved]
  - Neonatal respiratory depression [Recovered/Resolved]
  - Drug withdrawal syndrome neonatal [Recovered/Resolved]
